FAERS Safety Report 7478948-3 (Version None)
Quarter: 2011Q2

REPORT INFORMATION
  Report Type: 
  Country: None (occurrence: None)
  Receive Date: 20110513
  Receipt Date: 20110502
  Transmission Date: 20111010
  Serious: Yes (Death, Hospitalization, Other)
  Sender: FDA-Public Use
  Company Number: US-BAYER-201037711NA

PATIENT
  Age: 53 Year
  Sex: Female
  Weight: 88.889 kg

DRUGS (13)
  1. NASONEX [Concomitant]
  2. ZAROXOLYN [Concomitant]
  3. LEVOXYL [Concomitant]
  4. CELEBREX [Concomitant]
  5. PACERONE [Concomitant]
  6. NORVASC [Concomitant]
  7. YASMIN [Suspect]
     Indication: ACNE
     Dosage: UNK
     Dates: start: 20000101, end: 20010101
  8. LEVOTHYROXINE SODIUM [Concomitant]
  9. PROTONIX [Concomitant]
  10. COZAAR [Concomitant]
  11. ZYRTEC [Concomitant]
  12. DARVOCET-N 50 [Concomitant]
  13. DIGOXIN [Concomitant]

REACTIONS (3)
  - DYSPNOEA [None]
  - PAIN [None]
  - PULMONARY EMBOLISM [None]
